FAERS Safety Report 4391898-4 (Version None)
Quarter: 2004Q3

REPORT INFORMATION
  Report Type: 
  Country: None (occurrence: None)
  Receive Date: 20040701
  Receipt Date: 20040624
  Transmission Date: 20050211
  Serious: Yes (Hospitalization)
  Sender: FDA-Public Use
  Company Number: US-JNJFOC-20040607087

PATIENT
  Age: 40 Year
  Sex: Female
  Weight: 65.7716 kg

DRUGS (2)
  1. TOPAMAX [Suspect]
     Dosage: 25 MG, 1 IN 1 DAY, ORAL
     Route: 048
     Dates: start: 20040610
  2. IMITREX [Concomitant]

REACTIONS (2)
  - VISION BLURRED [None]
  - VISUAL ACUITY REDUCED [None]
